FAERS Safety Report 6042500-7 (Version None)
Quarter: 2009Q1

REPORT INFORMATION
  Report Type: 
  Country: None (occurrence: None)
  Receive Date: 20090116
  Receipt Date: 20090105
  Transmission Date: 20090719
  Serious: Yes (Hospitalization)
  Sender: FDA-Public Use
  Company Number: FI-GENENTECH-275075

PATIENT
  Sex: Female

DRUGS (14)
  1. MABTHERA [Suspect]
     Indication: RHEUMATOID ARTHRITIS
     Dosage: 1000 MG, UNK
     Route: 042
     Dates: start: 20070322
  2. AZATHIOPRINE [Suspect]
     Indication: RHEUMATOID ARTHRITIS
     Dosage: 150 MG, QD
     Route: 048
     Dates: start: 20040801, end: 20080513
  3. REUMACON [Suspect]
     Indication: RHEUMATOID ARTHRITIS
     Dosage: 200 MG, BID
     Route: 048
     Dates: start: 20060529, end: 20080517
  4. SIMVASTATIN [Suspect]
     Indication: HYPERCHOLESTEROLAEMIA
     Dosage: 20 MG, QD
     Route: 048
     Dates: start: 20071101
  5. SIMVASTATIN [Suspect]
     Dosage: 40 MG, QD
     Route: 048
     Dates: start: 20071101
  6. PREDNISOLONE [Concomitant]
     Indication: DRUG USE FOR UNKNOWN INDICATION
  7. FURESIS [Concomitant]
     Indication: DRUG USE FOR UNKNOWN INDICATION
  8. ENALAPRIL MALEATE AND HYDROCHLOROTHIAZIDE [Concomitant]
     Indication: DRUG USE FOR UNKNOWN INDICATION
  9. PRIMASPAN [Concomitant]
     Indication: DRUG USE FOR UNKNOWN INDICATION
  10. EMCONCOR [Concomitant]
     Indication: DRUG USE FOR UNKNOWN INDICATION
  11. CALCIUM CARBONATE [Concomitant]
     Indication: DRUG USE FOR UNKNOWN INDICATION
  12. OPTINATE SEPTIMUM [Concomitant]
     Indication: DRUG USE FOR UNKNOWN INDICATION
  13. CALCIUM SUPPLEMENT [Concomitant]
     Indication: DRUG USE FOR UNKNOWN INDICATION
  14. ACETAMINOPHEN [Concomitant]
     Indication: DRUG USE FOR UNKNOWN INDICATION

REACTIONS (5)
  - ARTHRITIS INFECTIVE [None]
  - CHEST PAIN [None]
  - DRUG INTERACTION [None]
  - LIVER FUNCTION TEST ABNORMAL [None]
  - RHABDOMYOLYSIS [None]
